FAERS Safety Report 8065056-6 (Version None)
Quarter: 2011Q4

REPORT INFORMATION
  Report Type: 
  Country: None (occurrence: None)
  Receive Date: 20111221
  Receipt Date: 20110627
  Transmission Date: 20120403
  Serious: Yes (Hospitalization)
  Sender: FDA-Public Use
  Company Number: PHHY2011US55344

PATIENT
  Age: 78 Year
  Sex: Female
  Weight: 63.9 kg

DRUGS (16)
  1. ASPIRIN (ACETYLSALICYLIC ACID, ASCORBIC ACID) [Concomitant]
  2. DIOVAN [Concomitant]
  3. OCUVITE (ASCORBIC ACID, RETINOL, TOCOPHEROL) [Concomitant]
  4. GLUCOPHAGE [Concomitant]
  5. SIMVASTATIN [Concomitant]
  6. LEVOTHYROXINE SODIUM [Concomitant]
  7. ARANESP [Concomitant]
  8. REVLIMID [Suspect]
     Indication: MYELODYSPLASTIC SYNDROME
     Dosage: 10 MG, DAILY, ORAL
     Route: 048
     Dates: start: 20110509, end: 20110531
  9. METOPROLOL TARTRATE [Concomitant]
  10. GLIMEPIRIDE [Concomitant]
  11. JANUVIA [Concomitant]
  12. TOPROL-XL [Concomitant]
  13. EXJADE [Suspect]
     Indication: IRON OVERLOAD
     Dosage: 1250 MG, DAILY, ORAL
     Route: 048
     Dates: start: 20110501, end: 20110531
  14. EXJADE [Suspect]
     Indication: MYELODYSPLASTIC SYNDROME
     Dosage: 1250 MG, DAILY, ORAL
     Route: 048
     Dates: start: 20110501, end: 20110531
  15. CENTRUM SILVER (ASCORBIC ACID, CALCIUM, MINERALS NOS, RETINOL, TOCOPHE [Concomitant]
  16. GLYBURIDE [Concomitant]

REACTIONS (1)
  - DIARRHOEA [None]
